FAERS Safety Report 15608552 (Version 1)
Quarter: 2018Q4

REPORT INFORMATION
  Report Type: Report from Study
  Country: US (occurrence: US)
  Receive Date: 20181112
  Receipt Date: 20181112
  Transmission Date: 20190205
  Serious: Yes (Other)
  Sender: FDA-Public Use
  Company Number: US-SHIRE-US201842933

PATIENT
  Sex: Female

DRUGS (1)
  1. TAKHZYRO [Suspect]
     Active Substance: LANADELUMAB-FLYO
     Indication: PRODUCT USED FOR UNKNOWN INDICATION
     Dosage: 300 MG, 1X/2WKS
     Route: 058
     Dates: start: 20181016, end: 20181030

REACTIONS (3)
  - Upper respiratory tract infection [Recovering/Resolving]
  - Urinary tract infection [Recovering/Resolving]
  - Tooth infection [Recovering/Resolving]

NARRATIVE: CASE EVENT DATE: 20181023
